FAERS Safety Report 17310634 (Version 1)
Quarter: 2020Q1

REPORT INFORMATION
  Report Type: Report from Study
  Country: US (occurrence: US)
  Receive Date: 20200123
  Receipt Date: 20200123
  Transmission Date: 20200409
  Serious: Yes (Death)
  Sender: FDA-Public Use
  Company Number: US-EXELIXIS-CABO-20026738

PATIENT
  Age: 69 Year
  Sex: Male
  Weight: 61.22 kg

DRUGS (13)
  1. LOVASTATIN. [Concomitant]
     Active Substance: LOVASTATIN
  2. CABOMETYX [Suspect]
     Active Substance: CABOZANTINIB S-MALATE
     Indication: RENAL CELL CARCINOMA
     Dosage: 60 MG, QD (3 TABLETS OF CABOMETYX 20 MG)
     Route: 048
     Dates: start: 20191209
  3. ASPIRIN. [Concomitant]
     Active Substance: ASPIRIN
  4. VITAMIN B12 [Concomitant]
     Active Substance: CYANOCOBALAMIN
  5. LEVOTHYROXINE SODIUM. [Concomitant]
     Active Substance: LEVOTHYROXINE SODIUM
  6. MAGNESIUM [Concomitant]
     Active Substance: MAGNESIUM
  7. TAMSULOSIN [Concomitant]
     Active Substance: TAMSULOSIN
  8. AMLODIPINE [Concomitant]
     Active Substance: AMLODIPINE BESYLATE
  9. ALLOPURINOL. [Concomitant]
     Active Substance: ALLOPURINOL
  10. LEVEMIR [Concomitant]
     Active Substance: INSULIN DETEMIR
  11. NORCO [Concomitant]
     Active Substance: ACETAMINOPHEN\HYDROCODONE BITARTRATE
  12. OXYCODONE [Concomitant]
     Active Substance: OXYCODONE
  13. VITAMIN D [Concomitant]
     Active Substance: VITAMIN D NOS

REACTIONS (1)
  - Death [Fatal]

NARRATIVE: CASE EVENT DATE: 20200113
